FAERS Safety Report 17434643 (Version 5)
Quarter: 2020Q1

REPORT INFORMATION
  Report Type: Spontaneous
  Country: US (occurrence: US)
  Receive Date: 20200219
  Receipt Date: 20200327
  Transmission Date: 20200409
  Serious: Yes (Other)
  Sender: FDA-Public Use
  Company Number: US-PFIZER INC-2020072363

PATIENT
  Age: 35 Year
  Sex: Female

DRUGS (1)
  1. SKELAXIN [Suspect]
     Active Substance: METAXALONE
     Dosage: 800 MG, UNK

REACTIONS (1)
  - Rheumatoid arthritis [Unknown]
